FAERS Safety Report 6409050-7 (Version None)
Quarter: 2009Q4

REPORT INFORMATION
  Report Type: 
  Country: None (occurrence: None)
  Receive Date: 20091019
  Receipt Date: 20091019
  Transmission Date: 20100525
  Serious: Yes (Hospitalization)
  Sender: FDA-Public Use
  Company Number: None

PATIENT
  Age: 87 Year
  Sex: Female
  Weight: 47 kg

DRUGS (1)
  1. MULTAQ [Suspect]
     Indication: ATRIAL FIBRILLATION
     Dosage: 400MG BID PO  (1 DOSE)
     Route: 048
     Dates: start: 20090929

REACTIONS (4)
  - FLUSHING [None]
  - GLOSSODYNIA [None]
  - PARAESTHESIA ORAL [None]
  - TONGUE DISCOLOURATION [None]
